FAERS Safety Report 7167270-0 (Version None)
Quarter: 2010Q4

REPORT INFORMATION
  Report Type: 
  Country: None (occurrence: None)
  Receive Date: 20101216
  Receipt Date: 20101206
  Transmission Date: 20110411
  Serious: Yes (Death)
  Sender: FDA-Public Use
  Company Number: CN-MILLENNIUM PHARMACEUTICALS, INC.-2010-06119

PATIENT

DRUGS (2)
  1. VELCADE [Suspect]
     Indication: AMYLOIDOSIS
     Dosage: UNK
  2. DEXAMETHASONE [Suspect]
     Indication: AMYLOIDOSIS
     Dosage: UNK

REACTIONS (1)
  - DEATH [None]
